FAERS Safety Report 10084861 (Version 2)
Quarter: 2014Q2

REPORT INFORMATION
  Report Type: Spontaneous
  Country: US (occurrence: US)
  Receive Date: 20140417
  Receipt Date: 20140506
  Transmission Date: 20141212
  Serious: Yes (Hospitalization, Other)
  Sender: FDA-Public Use
  Company Number: US-ELI_LILLY_AND_COMPANY-US201404002957

PATIENT
  Age: 11 Year
  Sex: Female
  Weight: 30.3 kg

DRUGS (2)
  1. HUMATROPE [Suspect]
     Indication: GROWTH HORMONE DEFICIENCY
     Dosage: 1.1 MG, QD
     Route: 058
     Dates: start: 20131123, end: 20140325
  2. HUMATROPE [Suspect]
     Dosage: 1.0 MG, UNK
     Route: 058
     Dates: start: 20140326, end: 20140406

REACTIONS (2)
  - Type 1 diabetes mellitus [Recovered/Resolved with Sequelae]
  - Oropharyngeal pain [Unknown]
